FAERS Safety Report 9698322 (Version 3)
Quarter: 2014Q2

REPORT INFORMATION
  Report Type: Spontaneous
  Country: US (occurrence: US)
  Receive Date: 20131120
  Receipt Date: 20140610
  Transmission Date: 20141212
  Serious: Yes (Life-Threatening, Hospitalization, Other)
  Sender: FDA-Public Use
  Company Number: US-BAYER-2013-139894

PATIENT
  Age: 22 Year
  Sex: Female
  Weight: 75.74 kg

DRUGS (7)
  1. MIRENA [Suspect]
     Indication: CONTRACEPTION
     Dosage: 20 MCG/24HR, CONT
     Route: 015
     Dates: start: 20110131
  2. MIRENA [Suspect]
     Indication: MENORRHAGIA
  3. ACYCLOVIR [ACICLOVIR] [Concomitant]
  4. SEPTRA DS [Concomitant]
  5. MACROBID [Concomitant]
  6. ZITHROMAX [Concomitant]
  7. METRONIDAZOLE [Concomitant]

REACTIONS (15)
  - Device dislocation [None]
  - Genital haemorrhage [None]
  - Abdominal pain [None]
  - Injury [None]
  - Emotional distress [None]
  - Abdominal pain lower [None]
  - General physical health deterioration [None]
  - Anxiety [None]
  - Anhedonia [None]
  - Device defective [None]
  - Device issue [None]
  - Pelvic inflammatory disease [None]
  - Depression [None]
  - Anxiety [None]
  - Menorrhagia [None]
